FAERS Safety Report 15366068 (Version 1)
Quarter: 2018Q3

REPORT INFORMATION
  Report Type: Spontaneous
  Country: US (occurrence: US)
  Receive Date: 20180910
  Receipt Date: 20180910
  Transmission Date: 20181010
  Serious: Yes (Other)
  Sender: FDA-Public Use
  Company Number: US-LEXICON PHARMACEUTICALS, INC-18-1606-01091

PATIENT
  Sex: Female

DRUGS (1)
  1. TELOTRISTAT ETHYL [Suspect]
     Active Substance: TELOTRISTAT ETHYL
     Indication: CARCINOID SYNDROME

REACTIONS (6)
  - Constipation [Unknown]
  - Malaise [Unknown]
  - Hepatic failure [Unknown]
  - Fistula [Unknown]
  - Abscess [Unknown]
  - General physical health deterioration [Unknown]
